FAERS Safety Report 21755825 (Version 1)
Quarter: 2022Q4

REPORT INFORMATION
  Report Type: Report from Study
  Country: IL (occurrence: IL)
  Receive Date: 20221220
  Receipt Date: 20221220
  Transmission Date: 20230113
  Serious: Yes (Other)
  Sender: FDA-Public Use
  Company Number: IL-SHIRE-IL201919389

PATIENT
  Age: 28 Year
  Sex: Female

DRUGS (6)
  1. VELAGLUCERASE ALFA [Suspect]
     Active Substance: VELAGLUCERASE ALFA
     Indication: Gaucher^s disease
     Dosage: 2 DOSAGE FORM, Q2WEEKS
     Route: 042
     Dates: start: 20160802
  2. VELAGLUCERASE ALFA [Suspect]
     Active Substance: VELAGLUCERASE ALFA
     Dosage: 2 DOSAGE FORM, Q2WEEKS
     Route: 042
     Dates: start: 20160802
  3. VELAGLUCERASE ALFA [Suspect]
     Active Substance: VELAGLUCERASE ALFA
     Dosage: 2 DOSAGE FORM, Q2WEEKS
     Route: 042
     Dates: start: 20160802
  4. VELAGLUCERASE ALFA [Suspect]
     Active Substance: VELAGLUCERASE ALFA
     Dosage: 2 DOSAGE FORM, Q2WEEKS
     Route: 042
     Dates: start: 20160802
  5. VELAGLUCERASE ALFA [Suspect]
     Active Substance: VELAGLUCERASE ALFA
     Dosage: 2 DOSAGE FORM, Q2WEEKS
     Route: 042
     Dates: start: 20160802
  6. VELAGLUCERASE ALFA [Suspect]
     Active Substance: VELAGLUCERASE ALFA
     Dosage: 4 DOSAGE FORM, MONTHLY
     Route: 042
     Dates: start: 20160803

REACTIONS (9)
  - COVID-19 [Unknown]
  - Cough [Not Recovered/Not Resolved]
  - Musculoskeletal chest pain [Not Recovered/Not Resolved]
  - Pyrexia [Recovered/Resolved]
  - Asthenia [Not Recovered/Not Resolved]
  - Malaise [Not Recovered/Not Resolved]
  - Myalgia [Unknown]
  - Influenza like illness [Not Recovered/Not Resolved]
  - Inappropriate schedule of product administration [Unknown]

NARRATIVE: CASE EVENT DATE: 20200206
